FAERS Safety Report 10748923 (Version 1)
Quarter: 2015Q1

REPORT INFORMATION
  Report Type: Spontaneous
  Country: US (occurrence: None)
  Receive Date: 20150128
  Receipt Date: 20150128
  Transmission Date: 20150721
  Serious: No
  Sender: FDA-Public Use
  Company Number: None

PATIENT
  Age: 43 Year
  Sex: Female
  Weight: 55.34 kg

DRUGS (2)
  1. VENOFER [Suspect]
     Active Substance: IRON SUCROSE
     Indication: CHRONIC KIDNEY DISEASE
     Dosage: 200 MG, INTO A VEIN
     Dates: start: 20150120, end: 20150120
  2. VENOFER [Suspect]
     Active Substance: IRON SUCROSE
     Indication: IRON DEFICIENCY ANAEMIA
     Dosage: 200 MG, INTO A VEIN
     Dates: start: 20150120, end: 20150120

REACTIONS (8)
  - Fatigue [None]
  - Arthralgia [None]
  - Nausea [None]
  - Peripheral swelling [None]
  - Influenza like illness [None]
  - Chest pain [None]
  - Hyperglycaemia [None]
  - Back pain [None]

NARRATIVE: CASE EVENT DATE: 20150120
